FAERS Safety Report 18490353 (Version 2)
Quarter: 2020Q4

REPORT INFORMATION
  Report Type: Report from Study
  Country: US (occurrence: US)
  Receive Date: 20201111
  Receipt Date: 20201112
  Transmission Date: 20210114
  Serious: Yes (Hospitalization)
  Sender: FDA-Public Use
  Company Number: US-EISAI MEDICAL RESEARCH-EC-2020-082768

PATIENT
  Age: 50 Year
  Sex: Female

DRUGS (16)
  1. LOSARTAN. [Suspect]
     Active Substance: LOSARTAN
     Indication: PRODUCT USED FOR UNKNOWN INDICATION
     Dosage: DOSE AND FREQUENCY UNKNOWN
     Route: 065
     Dates: start: 2020
  2. ACETAMINOPHEN. [Concomitant]
     Active Substance: ACETAMINOPHEN
  3. LENVIMA [Suspect]
     Active Substance: LENVATINIB
     Route: 048
     Dates: start: 20201017
  4. IBUPROFEN. [Concomitant]
     Active Substance: IBUPROFEN
  5. ONDANSETRON HCL [Concomitant]
     Active Substance: ONDANSETRON HYDROCHLORIDE
  6. LORAZEPAM. [Concomitant]
     Active Substance: LORAZEPAM
  7. OXYCODONE HYDROCHLORIDE. [Concomitant]
     Active Substance: OXYCODONE HYDROCHLORIDE
  8. EPIPEN [Concomitant]
     Active Substance: EPINEPHRINE
  9. LENVIMA [Suspect]
     Active Substance: LENVATINIB
     Route: 048
     Dates: start: 202010, end: 202010
  10. LANSOPRAZOLE. [Concomitant]
     Active Substance: LANSOPRAZOLE
  11. GABAPENTIN. [Concomitant]
     Active Substance: GABAPENTIN
  12. KEYTRUDA [Concomitant]
     Active Substance: PEMBROLIZUMAB
  13. LORATADINE. [Concomitant]
     Active Substance: LORATADINE
  14. VITAMIN B6 [Concomitant]
     Active Substance: PYRIDOXINE HYDROCHLORIDE
  15. LENVIMA [Suspect]
     Active Substance: LENVATINIB
     Indication: ENDOMETRIAL CANCER
     Route: 048
     Dates: start: 202010, end: 202010
  16. VITAMIN D3 [Concomitant]
     Active Substance: CHOLECALCIFEROL

REACTIONS (12)
  - Nausea [Unknown]
  - Chills [Unknown]
  - Stomatitis [Unknown]
  - Pyrexia [Unknown]
  - Dizziness [Unknown]
  - Myalgia [Unknown]
  - Diarrhoea [Unknown]
  - Feeling cold [Unknown]
  - Vomiting [Unknown]
  - Lethargy [Unknown]
  - Hypertensive emergency [Unknown]
  - Limb discomfort [Unknown]

NARRATIVE: CASE EVENT DATE: 2020
